FAERS Safety Report 24751822 (Version 3)
Quarter: 2025Q3

REPORT INFORMATION
  Report Type: Spontaneous
  Country: JP (occurrence: JP)
  Receive Date: 20241219
  Receipt Date: 20250808
  Transmission Date: 20251021
  Serious: Yes (Death, Life-Threatening, Hospitalization, Other)
  Sender: ROCHE
  Company Number: JP-CHUGAI-2024043769

PATIENT
  Age: 82 Year
  Sex: Male

DRUGS (5)
  1. TECENTRIQ [Suspect]
     Active Substance: ATEZOLIZUMAB
     Indication: Small cell lung cancer
     Route: 042
     Dates: start: 20240604, end: 20240604
  2. TECENTRIQ [Suspect]
     Active Substance: ATEZOLIZUMAB
     Route: 042
     Dates: start: 20240710, end: 20241015
  3. TECENTRIQ [Suspect]
     Active Substance: ATEZOLIZUMAB
     Dosage: 1200 UNK, ONCE/3WEEKS
     Route: 042
     Dates: start: 20241030, end: 20250304
  4. ETOPOSIDE [Concomitant]
     Active Substance: ETOPOSIDE
     Indication: Small cell lung cancer
     Route: 042
  5. CARBOPLATIN [Concomitant]
     Active Substance: CARBOPLATIN
     Indication: Small cell lung cancer
     Route: 042

REACTIONS (5)
  - Large intestine perforation [Recovering/Resolving]
  - Pyrexia [Recovered/Resolved]
  - Diverticulum intestinal [Recovered/Resolved]
  - Diverticulitis [Recovered/Resolved]
  - Small cell lung cancer [Fatal]

NARRATIVE: CASE EVENT DATE: 20241121
